FAERS Safety Report 13934374 (Version 1)
Quarter: 2017Q3

REPORT INFORMATION
  Report Type: Spontaneous
  Country: US (occurrence: US)
  Receive Date: 20170905
  Receipt Date: 20170905
  Transmission Date: 20171127
  Serious: No
  Sender: FDA-Public Use
  Company Number: US-AUROBINDO-AUR-APU-2016-15512

PATIENT
  Sex: Female

DRUGS (1)
  1. OXYCODONE AND ACETAMINOPHEN TABLETS USP, 10 MG/325 MG [Suspect]
     Active Substance: ACETAMINOPHEN\OXYCODONE HYDROCHLORIDE
     Indication: BACK INJURY
     Dosage: ONCE A PILL PER DAY
     Route: 065
     Dates: start: 20160901

REACTIONS (1)
  - Constipation [Not Recovered/Not Resolved]
